FAERS Safety Report 4273831-9 (Version None)
Quarter: 2004Q1

REPORT INFORMATION
  Report Type: 
  Country: None (occurrence: None)
  Receive Date: 20040120
  Receipt Date: 20020719
  Transmission Date: 20041129
  Serious: Yes (Other)
  Sender: FDA-Public Use
  Company Number: PHNU2002DE02521

PATIENT
  Age: 72 Year

DRUGS (6)
  1. BAYMYCARD [Concomitant]
  2. CORIFEO [Concomitant]
  3. TEGRETOL [Suspect]
     Indication: EPILEPSY
     Dosage: 700MG/DAY
     Route: 048
  4. TEGRETOL [Suspect]
     Dosage: 300 MG, BID
     Dates: start: 20020401
  5. LAMICTAL [Concomitant]
     Dosage: 125 MG/D
     Dates: end: 20020801
  6. NEURONTIN [Concomitant]
     Dosage: 2200MG/DAY
     Route: 065
     Dates: start: 20020801

REACTIONS (15)
  - ANTICONVULSANT DRUG LEVEL DECREASED [None]
  - BLOOD SODIUM DECREASED [None]
  - CONDITION AGGRAVATED [None]
  - CONSCIOUSNESS FLUCTUATING [None]
  - DEPRESSED LEVEL OF CONSCIOUSNESS [None]
  - DIABETES MELLITUS [None]
  - DISORIENTATION [None]
  - DISTURBANCE IN ATTENTION [None]
  - DRUG LEVEL DECREASED [None]
  - FATIGUE [None]
  - MUSCLE TWITCHING [None]
  - OEDEMA PERIPHERAL [None]
  - PETIT MAL EPILEPSY [None]
  - PRURITUS [None]
  - TREMOR [None]
